FAERS Safety Report 7311141-3 (Version None)
Quarter: 2011Q1

REPORT INFORMATION
  Report Type: 
  Country: None (occurrence: None)
  Receive Date: 20110214
  Receipt Date: 20110124
  Transmission Date: 20110831
  Serious: Yes (Life-Threatening, Hospitalization)
  Sender: FDA-Public Use
  Company Number: APP201100072

PATIENT
  Age: 63 Year
  Sex: Female

DRUGS (18)
  1. ALLOPURINOL [Concomitant]
  2. IVIG (IMMUNOGLOBULIN) [Suspect]
     Dosage: 1 G/KG
  3. ASPIRIN (ACETYLSALICYLIC ACID) [Concomitant]
  4. ANAGRELIDE HCL [Concomitant]
  5. METHYLPREDNISOLONE SODIUM SUCCINATE INJECTION, USP (METHYLPREDNISOLONE [Suspect]
     Indication: STEVENS-JOHNSON SYNDROME
     Dosage: DAILY, INTRAVENOUS
     Route: 042
  6. METHYLPREDNISOLONE SODIUM SUCCINATE INJECTION, USP (METHYLPREDNISOLONE [Suspect]
     Indication: TOXIC EPIDERMAL NECROLYSIS
     Dosage: DAILY, INTRAVENOUS
     Route: 042
  7. METHYLPREDNISOLONE SODIUM SUCCINATE INJECTION, USP (METHYLPREDNISOLONE [Suspect]
     Indication: STEVENS-JOHNSON SYNDROME
     Dosage: DAILY, INTRAVENOUS
     Route: 042
  8. METHYLPREDNISOLONE SODIUM SUCCINATE INJECTION, USP (METHYLPREDNISOLONE [Suspect]
     Indication: TOXIC EPIDERMAL NECROLYSIS
     Dosage: DAILY, INTRAVENOUS
     Route: 042
  9. METHYLPREDNISOLONE SODIUM SUCCINATE INJECTION, USP (METHYLPREDNISOLONE [Suspect]
     Indication: STEVENS-JOHNSON SYNDROME
     Dosage: DAILY, INTRAVENOUS
     Route: 042
  10. METHYLPREDNISOLONE SODIUM SUCCINATE INJECTION, USP (METHYLPREDNISOLONE [Suspect]
     Indication: TOXIC EPIDERMAL NECROLYSIS
     Dosage: DAILY, INTRAVENOUS
     Route: 042
  11. METHYLPREDNISOLONE SODIUM SUCCINATE INJECTION, USP (METHYLPREDNISOLONE [Suspect]
     Indication: STEVENS-JOHNSON SYNDROME
     Dosage: DAILY, INTRAVENOUS
     Route: 042
  12. METHYLPREDNISOLONE SODIUM SUCCINATE INJECTION, USP (METHYLPREDNISOLONE [Suspect]
     Indication: TOXIC EPIDERMAL NECROLYSIS
     Dosage: DAILY, INTRAVENOUS
     Route: 042
  13. METHYLPREDNISOLONE SODIUM SUCCINATE INJECTION, USP (METHYLPREDNISOLONE [Suspect]
     Indication: STEVENS-JOHNSON SYNDROME
     Dosage: DAILY, INTRAVENOUS
     Route: 042
  14. METHYLPREDNISOLONE SODIUM SUCCINATE INJECTION, USP (METHYLPREDNISOLONE [Suspect]
     Indication: TOXIC EPIDERMAL NECROLYSIS
     Dosage: DAILY, INTRAVENOUS
     Route: 042
  15. METHYLPREDNISOLONE SODIUM SUCCINATE INJECTION, USP (METHYLPREDNISOLONE [Suspect]
     Indication: STEVENS-JOHNSON SYNDROME
     Dosage: DAILY, INTRAVENOUS
     Route: 042
  16. METHYLPREDNISOLONE SODIUM SUCCINATE INJECTION, USP (METHYLPREDNISOLONE [Suspect]
     Indication: TOXIC EPIDERMAL NECROLYSIS
     Dosage: DAILY, INTRAVENOUS
     Route: 042
  17. METHYLPREDNISOLONE SODIUM SUCCINATE INJECTION, USP (METHYLPREDNISOLONE [Suspect]
     Indication: STEVENS-JOHNSON SYNDROME
     Dosage: DAILY, INTRAVENOUS
     Route: 042
  18. METHYLPREDNISOLONE SODIUM SUCCINATE INJECTION, USP (METHYLPREDNISOLONE [Suspect]
     Indication: TOXIC EPIDERMAL NECROLYSIS
     Dosage: DAILY, INTRAVENOUS
     Route: 042

REACTIONS (13)
  - PYREXIA [None]
  - HYPERAEMIA [None]
  - ULCER [None]
  - DYSPNOEA [None]
  - BRONCHOSCOPY ABNORMAL [None]
  - COUGH [None]
  - RESPIROVIRUS TEST POSITIVE [None]
  - LUNG CONSOLIDATION [None]
  - PNEUMOCYSTIS JIROVECI PNEUMONIA [None]
  - INTERSTITIAL LUNG DISEASE [None]
  - CYTOMEGALOVIRUS TEST POSITIVE [None]
  - ASPERGILLUS TEST POSITIVE [None]
  - ACINETOBACTER TEST POSITIVE [None]
